FAERS Safety Report 8188520-8 (Version None)
Quarter: 2012Q1

REPORT INFORMATION
  Report Type: 
  Country: None (occurrence: None)
  Receive Date: 20120306
  Receipt Date: 20120301
  Transmission Date: 20120608
  Serious: Yes (Life-Threatening, Hospitalization)
  Sender: FDA-Public Use
  Company Number: PHHY2012BE017867

PATIENT
  Sex: Male
  Weight: 25 kg

DRUGS (3)
  1. METHYLPHENIDATE HCL [Suspect]
     Dosage: 10 MG, QD
     Dates: start: 20070101
  2. RITALIN-SR [Suspect]
     Dosage: 20 MG, QD
     Dates: start: 20070101
  3. ARIPIPRAZOLE [Suspect]
     Dosage: 10 MG, QD
     Dates: start: 20120210

REACTIONS (4)
  - DYSKINESIA [None]
  - DROOLING [None]
  - DIPLOPIA [None]
  - DYSTONIA [None]
